FAERS Safety Report 8932702 (Version 2)
Quarter: 2013Q4

REPORT INFORMATION
  Report Type: Spontaneous
  Country: US (occurrence: US)
  Receive Date: 20121128
  Receipt Date: 20131206
  Transmission Date: 20140711
  Serious: Yes (Hospitalization)
  Sender: FDA-Public Use
  Company Number: US-UCBSA-071246

PATIENT
  Age: 57 Year
  Sex: Female

DRUGS (1)
  1. VIMPAT [Suspect]

REACTIONS (2)
  - Intestinal obstruction [Recovered/Resolved]
  - Product quality issue [Unknown]
